FAERS Safety Report 6658166-9 (Version None)
Quarter: 2010Q1

REPORT INFORMATION
  Report Type: 
  Country: None (occurrence: None)
  Receive Date: 20100330
  Receipt Date: 20100323
  Transmission Date: 20100710
  Serious: Yes (Death)
  Sender: FDA-Public Use
  Company Number: B0639349A

PATIENT
  Sex: Female

DRUGS (3)
  1. PAXIL [Suspect]
     Indication: DEPRESSED MOOD
     Route: 048
     Dates: start: 20070608
  2. MEILAX [Concomitant]
     Indication: ANXIETY
     Dosage: 1MG PER DAY
     Route: 048
     Dates: start: 20070706
  3. CHINESE MEDICINE [Concomitant]
     Indication: FATIGUE
     Dosage: 5MG PER DAY
     Route: 048
     Dates: start: 20070706

REACTIONS (2)
  - DEATH [None]
  - SUDDEN DEATH [None]
